FAERS Safety Report 23338493 (Version 1)
Quarter: 2023Q4

REPORT INFORMATION
  Report Type: Spontaneous
  Country: US (occurrence: None)
  Receive Date: 20231223
  Receipt Date: 20231223
  Transmission Date: 20240110
  Serious: Yes (Hospitalization)
  Sender: FDA-Public Use
  Company Number: None

PATIENT
  Age: 66 Year
  Sex: Female

DRUGS (3)
  1. SILDENAFIL CITRATE [Suspect]
     Active Substance: SILDENAFIL CITRATE
     Indication: Pulmonary arterial hypertension
     Dosage: 40MG TID ORAL?
     Route: 048
     Dates: start: 202110
  2. UPTRAVI [Concomitant]
     Active Substance: SELEXIPAG
  3. OPSUMIT [Concomitant]
     Active Substance: MACITENTAN

REACTIONS (3)
  - COVID-19 [None]
  - SARS-CoV-2 test positive [None]
  - Heart rate decreased [None]

NARRATIVE: CASE EVENT DATE: 20231216
